FAERS Safety Report 5633060-0 (Version None)
Quarter: 2008Q1

REPORT INFORMATION
  Report Type: 
  Country: None (occurrence: None)
  Receive Date: 20080214
  Receipt Date: 20080207
  Transmission Date: 20080703
  Serious: Yes (Other)
  Sender: FDA-Public Use
  Company Number: 2008SP001998

PATIENT

DRUGS (10)
  1. TEMODAL [Suspect]
     Indication: GLIOBLASTOMA
     Dosage: 140 MG;QD;PO
     Route: 048
     Dates: start: 20080117, end: 20080125
  2. TEMODAL [Suspect]
     Indication: GLIOBLASTOMA
     Dosage: 140 MG;QD;PO
     Route: 048
     Dates: start: 20080131
  3. COZAAR [Concomitant]
  4. PRAVALOTIN [Concomitant]
  5. PHENYTOIN [Concomitant]
  6. FORTECORTIN [Concomitant]
  7. PANTOZOL [Concomitant]
  8. MIANSERIN [Concomitant]
  9. ZOFRAN [Concomitant]
  10. BACTRIM [Concomitant]

REACTIONS (1)
  - GAMMA-GLUTAMYLTRANSFERASE INCREASED [None]
